FAERS Safety Report 8107503 (Version 4)
Quarter: 2013Q4

REPORT INFORMATION
  Report Type: Spontaneous
  Country: US (occurrence: US)
  Receive Date: 20110825
  Receipt Date: 20131203
  Transmission Date: 20140711
  Serious: Yes (Other)
  Sender: FDA-Public Use
  Company Number: US-ASTRAZENECA-2011SE49569

PATIENT
  Age: 52 Year
  Sex: Female
  Weight: 73.6 kg

DRUGS (19)
  1. NEXIUM [Suspect]
     Indication: BARRETT^S OESOPHAGUS
     Dosage: BID
     Route: 048
  2. NEXIUM [Suspect]
     Indication: GASTROOESOPHAGEAL REFLUX DISEASE
     Dosage: BID
     Route: 048
  3. NEXIUM [Suspect]
     Indication: BARRETT^S OESOPHAGUS
     Route: 048
  4. NEXIUM [Suspect]
     Indication: GASTROOESOPHAGEAL REFLUX DISEASE
     Route: 048
  5. PRILOSEC [Suspect]
     Route: 048
  6. KOMBIGLYZE XR [Suspect]
     Route: 048
  7. LASIX [Suspect]
     Route: 048
  8. ACIPHEX [Concomitant]
  9. DEXILANT [Concomitant]
  10. TRACLEER [Concomitant]
     Route: 048
  11. CYANOCOBALAMIN [Concomitant]
     Dosage: 1000 MCG/ML MONTHLY
  12. VITAMIN D [Concomitant]
     Dosage: 50000 UNITS WEEKLY
     Route: 048
  13. VYTORIN [Concomitant]
     Dosage: 10-40 MG TABLET, ONE TABLET EVERY EVENING
     Route: 048
  14. AVANDIA [Concomitant]
     Indication: DIABETES MELLITUS
  15. SIMVASTATIN [Concomitant]
     Indication: HYPERCHOLESTEROLAEMIA
  16. MAGNESIUM [Concomitant]
  17. CHROMIUM [Concomitant]
  18. PROTONEX [Concomitant]
  19. ZANTAX [Concomitant]

REACTIONS (26)
  - Aspiration [Unknown]
  - Scleroderma [Unknown]
  - Pulmonary arterial hypertension [Unknown]
  - Lung disorder [Unknown]
  - Ventricular extrasystoles [Unknown]
  - Menorrhagia [Recovered/Resolved]
  - Iron deficiency anaemia [Unknown]
  - Uterine leiomyoma [Unknown]
  - Cervical polyp [Unknown]
  - Diabetes mellitus [Unknown]
  - Arteriosclerosis coronary artery [Unknown]
  - Haematochezia [Unknown]
  - Pulmonary fibrosis [Unknown]
  - Breast mass [Unknown]
  - Musculoskeletal stiffness [Unknown]
  - Hypokalaemia [Recovered/Resolved]
  - Large intestine polyp [Unknown]
  - Oedema peripheral [Unknown]
  - Arthralgia [Unknown]
  - Agitation [Unknown]
  - Diarrhoea [Unknown]
  - Barrett^s oesophagus [Recovered/Resolved]
  - Hypercholesterolaemia [Unknown]
  - Raynaud^s phenomenon [Unknown]
  - Drug dose omission [Unknown]
  - Drug effect incomplete [Unknown]
